FAERS Safety Report 13625195 (Version 1)
Quarter: 2017Q2

REPORT INFORMATION
  Report Type: Spontaneous
  Country: US (occurrence: US)
  Receive Date: 20170608
  Receipt Date: 20170608
  Transmission Date: 20170830
  Serious: Yes (Other)
  Sender: FDA-Public Use
  Company Number: US-BAYER-2017-105167

PATIENT
  Sex: Female

DRUGS (11)
  1. OSTEOBISS [Concomitant]
     Indication: ARTHROPATHY
     Dosage: 1 DF, BID
     Route: 048
     Dates: start: 20170315
  2. LISINOPRIL. [Concomitant]
     Active Substance: LISINOPRIL
     Indication: PROPHYLAXIS
  3. MELATONIN [Concomitant]
     Active Substance: MELATONIN
     Dosage: 5 MG, QD, HS
     Route: 048
  4. VITAMIN D [Concomitant]
     Active Substance: CHOLECALCIFEROL
     Dosage: 1000 U, QD
     Route: 048
  5. JANUMET [Concomitant]
     Active Substance: METFORMIN HYDROCHLORIDE\SITAGLIPTIN PHOSPHATE
     Dosage: 1000 MG-50 MG, BID
     Route: 048
  6. LISINOPRIL. [Concomitant]
     Active Substance: LISINOPRIL
     Indication: HYPERTENSION
     Dosage: 5 MG, QD
     Route: 048
  7. CANAGLIFLOZIN [Concomitant]
     Active Substance: CANAGLIFLOZIN
     Dosage: 100 MG, QD
     Route: 048
     Dates: start: 20170321
  8. ALEVE [Suspect]
     Active Substance: NAPROXEN SODIUM
     Dosage: UNK
  9. LYRICA [Concomitant]
     Active Substance: PREGABALIN
     Dosage: 50 MG, BID
     Route: 048
     Dates: start: 20170321
  10. AMOXICILLIN. [Concomitant]
     Active Substance: AMOXICILLIN
     Indication: URINARY TRACT INFECTION
     Dosage: 500 MG, TID
     Route: 048
  11. CELECOXIB. [Concomitant]
     Active Substance: CELECOXIB
     Dosage: 100 MG, BID
     Route: 048

REACTIONS (2)
  - Hepatic failure [Unknown]
  - Drug hypersensitivity [Unknown]
